FAERS Safety Report 5676237-0 (Version None)
Quarter: 2008Q1

REPORT INFORMATION
  Report Type: 
  Country: None (occurrence: None)
  Receive Date: 20080321
  Receipt Date: 20080318
  Transmission Date: 20080703
  Serious: Yes (Other)
  Sender: FDA-Public Use
  Company Number: JP-SANOFI-SYNTHELABO-A01200803010

PATIENT

DRUGS (3)
  1. PLAVIX [Suspect]
     Indication: STENT PLACEMENT
     Route: 065
     Dates: start: 20080308, end: 20080308
  2. PLAVIX [Suspect]
     Dosage: 75 MG
     Route: 065
     Dates: start: 20080309
  3. ASPIRIN [Concomitant]
     Indication: STENT PLACEMENT
     Dosage: UNK
     Route: 065
     Dates: start: 20080312

REACTIONS (1)
  - IN-STENT CORONARY ARTERY RESTENOSIS [None]
